FAERS Safety Report 6146776-7 (Version None)
Quarter: 2009Q2

REPORT INFORMATION
  Report Type: 
  Country: None (occurrence: None)
  Receive Date: 20090407
  Receipt Date: 20090327
  Transmission Date: 20091009
  Serious: Yes (Hospitalization, Other)
  Sender: FDA-Public Use
  Company Number: NZ-CELGENEUS-118-21880-09031817

PATIENT
  Sex: Female
  Weight: 69 kg

DRUGS (4)
  1. REVLIMID [Suspect]
     Indication: MULTIPLE MYELOMA
     Route: 048
     Dates: start: 20090306, end: 20090326
  2. DEXAMETHASONE [Suspect]
     Indication: DRUG USE FOR UNKNOWN INDICATION
     Route: 048
     Dates: start: 20090306, end: 20090325
  3. ASPIRIN [Concomitant]
     Route: 048
     Dates: start: 20090306
  4. INHIBACE [Concomitant]
     Indication: HYPERTENSION
     Route: 048
     Dates: start: 20071018, end: 20080328

REACTIONS (1)
  - SYNCOPE [None]
